FAERS Safety Report 4343834-4 (Version None)
Quarter: 2004Q2

REPORT INFORMATION
  Report Type: 
  Country: None (occurrence: None)
  Receive Date: 20040419
  Receipt Date: 20040406
  Transmission Date: 20050107
  Serious: Yes (Other)
  Sender: FDA-Public Use
  Company Number: US-JNJFOC-20040401923

PATIENT
  Age: 30 Year
  Sex: Female

DRUGS (3)
  1. DURAGESIC [Suspect]
     Indication: PAIN
     Dosage: 75 UG/HR, 1 IIN 48 HOUR. TRANSDERMAL
     Route: 062
     Dates: start: 20010125
  2. DURAGESIC [Suspect]
  3. ORAMORPH (MORPHINE SULFATE) TABLETS [Concomitant]

REACTIONS (5)
  - ARACHNOIDITIS [None]
  - DIZZINESS [None]
  - HALLUCINATION, VISUAL [None]
  - HEADACHE [None]
  - RASH GENERALISED [None]
